FAERS Safety Report 6152246-2 (Version None)
Quarter: 2009Q2

REPORT INFORMATION
  Report Type: 
  Country: None (occurrence: None)
  Receive Date: 20090410
  Receipt Date: 20090403
  Transmission Date: 20091009
  Serious: Yes (Hospitalization)
  Sender: FDA-Public Use
  Company Number: US-GENENTECH-279502

PATIENT
  Sex: Male
  Weight: 90.703 kg

DRUGS (9)
  1. BEVACIZUMAB [Suspect]
     Indication: RECTAL CANCER
     Dosage: 473 MG, DAYS 1+15
     Route: 042
     Dates: start: 20080701
  2. FLUOROURACIL [Suspect]
     Indication: RECTAL CANCER
     Dosage: 225 MG/M2, DAYS 1-42
     Route: 042
     Dates: start: 20080701
  3. RADIATION [Suspect]
     Indication: RECTAL CANCER
     Dosage: 1.8 GY, UNK
     Dates: start: 20080701
  4. LIPITOR [Concomitant]
     Indication: DRUG USE FOR UNKNOWN INDICATION
     Dosage: 20 MG, QD
  5. PREVACID [Concomitant]
     Indication: DRUG USE FOR UNKNOWN INDICATION
     Dosage: 30 MG, QD
  6. REGLAN [Concomitant]
     Indication: DRUG USE FOR UNKNOWN INDICATION
     Dosage: 10 MG, QHS
  7. ZYRTEC [Concomitant]
     Indication: DRUG USE FOR UNKNOWN INDICATION
     Dosage: UNK
  8. COUMADIN [Concomitant]
     Indication: DRUG USE FOR UNKNOWN INDICATION
     Dosage: 1 MG, QD
  9. ARTIFICIAL SALIVA NOS [Concomitant]
     Indication: MUCOSAL INFLAMMATION
     Dosage: UNK

REACTIONS (3)
  - ACUTE RESPIRATORY FAILURE [None]
  - MYOCARDIAL INFARCTION [None]
  - SEPSIS [None]
